FAERS Safety Report 21642982 (Version 2)
Quarter: 2022Q4

REPORT INFORMATION
  Report Type: Spontaneous
  Country: JP (occurrence: None)
  Receive Date: 20221125
  Receipt Date: 20221201
  Transmission Date: 20230113
  Serious: Yes (Other)
  Sender: FDA-Public Use
  Company Number: 2022A383907

PATIENT
  Age: 80 Year
  Sex: Female

DRUGS (4)
  1. FASLODEX [Suspect]
     Active Substance: FULVESTRANT
     Indication: Breast cancer recurrent
     Dosage: DOSE UNKNOWN
     Route: 030
     Dates: start: 2021
  2. IBRANCE [Suspect]
     Active Substance: PALBOCICLIB
     Indication: Breast cancer recurrent
     Dosage: NUMBER OF SEPARATE DOSAGES UNKNOWN125.0MG UNKNOWN
     Route: 048
     Dates: start: 2021, end: 2022
  3. IBRANCE [Suspect]
     Active Substance: PALBOCICLIB
     Indication: Breast cancer recurrent
     Dosage: NUMBER OF SEPARATE DOSAGES UNKNOWN125.0MG UNKNOWN
     Route: 048
     Dates: start: 2022, end: 2022
  4. ASPIRIN [Concomitant]
     Active Substance: ASPIRIN
     Dosage: DOSE UNKNOWN
     Route: 065

REACTIONS (2)
  - Neutrophil count decreased [Recovered/Resolved]
  - Interstitial lung disease [Recovered/Resolved]

NARRATIVE: CASE EVENT DATE: 20220101
